FAERS Safety Report 8954431 (Version 3)
Quarter: 2014Q1

REPORT INFORMATION
  Report Type: Report from Study
  Country: IL (occurrence: IL)
  Receive Date: 20121210
  Receipt Date: 20140127
  Transmission Date: 20141002
  Serious: Yes (Hospitalization)
  Sender: FDA-Public Use
  Company Number: PHHY2012IL112451

PATIENT
  Age: 37 Year
  Sex: Male

DRUGS (3)
  1. SANDOSTATIN LAR [Suspect]
     Indication: ACROMEGALY
     Dosage: 20 MG, EVERY 4 WEEKS
     Route: 030
     Dates: start: 20120315
  2. SANDOSTATIN LAR [Suspect]
     Dosage: 30 MG, EVERY 4 WEEK
     Route: 030
     Dates: start: 20131223
  3. SANDOSTATIN LAR [Suspect]
     Dosage: 30 MG, EVERY 4 WEEK
     Route: 030
     Dates: start: 20140121

REACTIONS (9)
  - Dyspnoea [Not Recovered/Not Resolved]
  - Trismus [Not Recovered/Not Resolved]
  - Snoring [Unknown]
  - Sleep disorder [Unknown]
  - Apnoea [Unknown]
  - Asthenia [Recovered/Resolved]
  - Hypoglycaemia [Recovered/Resolved]
  - Blood glucose increased [Unknown]
  - Hypothyroidism [Unknown]
